FAERS Safety Report 14361618 (Version 2)
Quarter: 2018Q1

REPORT INFORMATION
  Report Type: Spontaneous
  Country: JP (occurrence: JP)
  Receive Date: 20180108
  Receipt Date: 20180201
  Transmission Date: 20180509
  Serious: Yes (Life-Threatening, Hospitalization)
  Sender: FDA-Public Use
  Company Number: JP-VIFOR (INTERNATIONAL) INC.-VIT-2017-14509

PATIENT
  Age: 40 Year
  Sex: Male

DRUGS (22)
  1. TENELIA [Concomitant]
     Active Substance: TENELIGLIPTIN
     Route: 048
  2. CALTAN [Concomitant]
     Active Substance: CALCIUM CARBONATE
     Route: 048
  3. RISUMIC [Concomitant]
     Active Substance: AMEZINIUM METILSULFATE
     Route: 048
  4. SODIUM BICARBONATE. [Concomitant]
     Active Substance: SODIUM BICARBONATE
     Route: 048
  5. PANALDINE [Concomitant]
     Active Substance: TICLOPIDINE HYDROCHLORIDE
     Route: 048
  6. MEXITIL [Concomitant]
     Active Substance: MEXILETINE HYDROCHLORIDE
     Route: 048
  7. ATARAX-P [Concomitant]
     Active Substance: HYDROXYZINE HYDROCHLORIDE
     Route: 048
  8. KIKLIN [Concomitant]
     Active Substance: BIXALOMER
     Route: 048
  9. RIONA [Concomitant]
     Active Substance: FERRIC CITRATE ANHYDROUS
     Route: 048
  10. ADALAT CC [Concomitant]
     Active Substance: NIFEDIPINE
     Route: 048
  11. GASMOTIN [Concomitant]
     Active Substance: MOSAPRIDE CITRATE
     Route: 048
  12. LENDORMIN D [Concomitant]
     Active Substance: BROTIZOLAM
     Route: 048
  13. KINEDAK [Concomitant]
     Active Substance: EPALRESTAT
     Route: 048
  14. PENLES [Concomitant]
     Active Substance: LIDOCAINE
     Route: 061
  15. NOVORAPID [Concomitant]
     Active Substance: INSULIN ASPART
     Route: 065
  16. MIRCERA [Suspect]
     Active Substance: METHOXY POLYETHYLENE GLYCOL-EPOETIN BETA
     Indication: NEPHROGENIC ANAEMIA
     Route: 042
     Dates: start: 20171206, end: 20171206
  17. NEXIUM [Concomitant]
     Active Substance: ESOMEPRAZOLE MAGNESIUM
     Route: 048
  18. EBASTEL [Concomitant]
     Active Substance: EBASTINE
     Route: 048
  19. CONSTAN [Concomitant]
     Active Substance: ALPRAZOLAM
     Route: 048
  20. REMITCH [Concomitant]
     Active Substance: NALFURAFINE HYDROCHLORIDE
     Route: 048
  21. DOPS [Concomitant]
     Active Substance: DROXIDOPA
     Route: 048
  22. LEVEMIR [Concomitant]
     Active Substance: INSULIN DETEMIR
     Route: 065

REACTIONS (8)
  - Hyperhidrosis [Unknown]
  - Blood pressure decreased [Recovered/Resolved]
  - Erythema [Unknown]
  - Pruritus generalised [Recovered/Resolved]
  - Nausea [Unknown]
  - Urticaria [Unknown]
  - Anaphylactic shock [Recovered/Resolved]
  - Ventricular extrasystoles [Unknown]

NARRATIVE: CASE EVENT DATE: 201712
